FAERS Safety Report 7359626-8 (Version None)
Quarter: 2011Q1

REPORT INFORMATION
  Report Type: 
  Country: None (occurrence: None)
  Receive Date: 20110317
  Receipt Date: 20100301
  Transmission Date: 20110831
  Serious: No
  Sender: FDA-Public Use
  Company Number: US-PFIZER INC-2010027824

PATIENT
  Sex: Male

DRUGS (2)
  1. LIPITOR [Concomitant]
  2. NORVASC [Suspect]
     Indication: HYPERTENSION
     Dosage: 2.5MG,  5X/DAY,

REACTIONS (2)
  - DIZZINESS [None]
  - DRUG INEFFECTIVE [None]
